FAERS Safety Report 8354516-6 (Version None)
Quarter: 2012Q2

REPORT INFORMATION
  Report Type: 
  Country: None (occurrence: None)
  Receive Date: 20120511
  Receipt Date: 20120504
  Transmission Date: 20120825
  Serious: Yes (Hospitalization, Other)
  Sender: FDA-Public Use
  Company Number: US-JNJFOC-20120300296

PATIENT
  Age: 61 Year
  Sex: Female
  Weight: 63.49 kg

DRUGS (3)
  1. NICOTROL [Suspect]
     Route: 045
  2. NICOTROL [Suspect]
     Route: 045
     Dates: start: 20120122
  3. NICOTROL [Suspect]
     Indication: SMOKING CESSATION THERAPY
     Route: 045

REACTIONS (8)
  - MEMORY IMPAIRMENT [None]
  - MALAISE [None]
  - ANXIETY [None]
  - DEPRESSED MOOD [None]
  - PRODUCT QUALITY ISSUE [None]
  - CEREBROVASCULAR ACCIDENT [None]
  - TOOTH EXTRACTION [None]
  - NERVOUSNESS [None]
